FAERS Safety Report 6493378-9 (Version None)
Quarter: 2009Q4

REPORT INFORMATION
  Report Type: 
  Country: None (occurrence: None)
  Receive Date: 20091214
  Receipt Date: 20091210
  Transmission Date: 20100525
  Serious: Yes (Death, Other)
  Sender: FDA-Public Use
  Company Number: CHPA2009US23281

PATIENT
  Age: 75 Year
  Sex: Male

DRUGS (3)
  1. THERAFLU WARMING RELIEF COLD + CHEST CONG (NCH) [Suspect]
     Indication: COUGH
     Dosage: 3 TSP, BID
     Route: 048
     Dates: start: 20091101, end: 20091101
  2. BENICAR [Concomitant]
     Indication: BLOOD CHOLESTEROL INCREASED
     Dosage: 1 DF, QD
  3. PLAVIX [Concomitant]
     Indication: BRONCHITIS

REACTIONS (2)
  - DEATH [None]
  - MYOCARDIAL INFARCTION [None]
